FAERS Safety Report 6466743-3 (Version None)
Quarter: 2009Q4

REPORT INFORMATION
  Report Type: 
  Country: None (occurrence: None)
  Receive Date: 20091202
  Receipt Date: 20091123
  Transmission Date: 20100525
  Serious: Yes (Death, Hospitalization)
  Sender: FDA-Public Use
  Company Number: US-TEVA-216176USA

PATIENT
  Age: 44 Year
  Sex: Male

DRUGS (2)
  1. PHENTERMINE HYDROCHLORIDE 37.5 MG [Suspect]
     Indication: OBESITY
  2. LEVOTHYROXINE SODIUM [Suspect]

REACTIONS (6)
  - CARDIOVASCULAR DISORDER [None]
  - CONFUSIONAL STATE [None]
  - CONVULSION [None]
  - HYPERTENSION [None]
  - TREMOR [None]
  - VENTRICULAR FIBRILLATION [None]
